FAERS Safety Report 5363077-5 (Version None)
Quarter: 2007Q2

REPORT INFORMATION
  Report Type: 
  Country: None (occurrence: None)
  Receive Date: 20070615
  Receipt Date: 20070605
  Transmission Date: 20071010
  Serious: Yes (Other)
  Sender: FDA-Public Use
  Company Number: US020235

PATIENT
  Age: 63 Year
  Sex: Female

DRUGS (2)
  1. PROVIGIL [Suspect]
     Indication: HYPERSOMNIA
     Dosage: 200 MG QD ORAL
     Route: 048
     Dates: start: 20050101
  2. CLOZAPINE [Suspect]
     Indication: SCHIZOPHRENIA
     Dosage: 400 MG QD ORAL
     Route: 048

REACTIONS (1)
  - NEUTROPENIA [None]
